FAERS Safety Report 6102871-X (Version None)
Quarter: 2009Q1

REPORT INFORMATION
  Report Type: 
  Country: None (occurrence: None)
  Receive Date: 20090304
  Receipt Date: 20090225
  Transmission Date: 20090719
  Serious: Yes (Other)
  Sender: FDA-Public Use
  Company Number: DE-AMGEN-UK335782

PATIENT

DRUGS (1)
  1. MIMPARA [Suspect]
     Indication: HYPERPARATHYROIDISM SECONDARY
     Route: 065
     Dates: start: 20080901

REACTIONS (3)
  - BLOOD PARATHYROID HORMONE INCREASED [None]
  - PARATHYROID TUMOUR BENIGN [None]
  - THERAPEUTIC RESPONSE DECREASED [None]
